FAERS Safety Report 4902027-X (Version None)
Quarter: 2006Q1

REPORT INFORMATION
  Report Type: 
  Country: None (occurrence: None)
  Receive Date: 20060202
  Receipt Date: 20060202
  Transmission Date: 20060701
  Serious: No
  Sender: FDA-Public Use
  Company Number: None

PATIENT
  Age: 57 Year
  Sex: Female
  Weight: 61.2356 kg

DRUGS (2)
  1. PAROXETINE HCL [Suspect]
     Indication: ANXIETY
     Dosage: 20MG ONCE DAILY
     Dates: start: 20041101, end: 20050310
  2. PAROXETINE HCL [Suspect]
     Dosage: 20MG ONCE DAILY
     Dates: start: 20051201, end: 20060201

REACTIONS (3)
  - DRUG WITHDRAWAL SYNDROME [None]
  - DYSPNOEA [None]
  - PHARMACEUTICAL PRODUCT COMPLAINT [None]
